FAERS Safety Report 4864578-6 (Version None)
Quarter: 2005Q4

REPORT INFORMATION
  Report Type: 
  Country: None (occurrence: None)
  Receive Date: 20051222
  Receipt Date: 20051213
  Transmission Date: 20060501
  Serious: Yes (Hospitalization)
  Sender: FDA-Public Use
  Company Number: JP-NOVOPROD-249400

PATIENT
  Age: 59 Year
  Sex: Female

DRUGS (4)
  1. NOVORAPID 30 MIX CHU FLEXPEN [Suspect]
     Indication: DIABETES MELLITUS INSULIN-DEPENDENT
     Route: 058
     Dates: start: 20040601, end: 20040901
  2. EUGLUCON [Concomitant]
  3. AMITRIPTYLINE HCL [Concomitant]
  4. NOVORAPID CHU FLEXPEN [Suspect]
     Indication: DIABETES MELLITUS INSULIN-DEPENDENT
     Route: 058
     Dates: start: 20040528, end: 20040901

REACTIONS (3)
  - GENERALISED OEDEMA [None]
  - NEURALGIA [None]
  - THERAPY NON-RESPONDER [None]
